FAERS Safety Report 10544436 (Version 1)
Quarter: 2014Q4

REPORT INFORMATION
  Report Type: Spontaneous
  Country: CO (occurrence: CO)
  Receive Date: 20141027
  Receipt Date: 20141027
  Transmission Date: 20150529
  Serious: Yes (Other)
  Sender: FDA-Public Use
  Company Number: CO-GLAXOSMITHKLINE-CO2014GSK012261

PATIENT
  Sex: Female

DRUGS (3)
  1. TRASTUZUMAB [Concomitant]
     Active Substance: TRASTUZUMAB
     Indication: BREAST CANCER METASTATIC
     Route: 065
  2. TYKERB [Suspect]
     Active Substance: LAPATINIB DITOSYLATE
     Indication: BREAST CANCER METASTATIC
     Dosage: 1000 MG, QD
     Route: 048
  3. ANTICONVULSANT [Concomitant]
     Active Substance: UNSPECIFIED INGREDIENT
     Indication: EPILEPSY
     Route: 065

REACTIONS (1)
  - Skin toxicity [Not Recovered/Not Resolved]
